FAERS Safety Report 6506685-8 (Version None)
Quarter: 2009Q4

REPORT INFORMATION
  Report Type: 
  Country: None (occurrence: None)
  Receive Date: 20091221
  Receipt Date: 20091216
  Transmission Date: 20100525
  Serious: Yes (Other)
  Sender: FDA-Public Use
  Company Number: BR-ROCHE-669721

PATIENT
  Sex: Female

DRUGS (2)
  1. RIVOTRIL [Suspect]
     Dosage: OTHER INDICATIONS: TREMOR AND ABSENCE; THERAPY START DATE BEFORE 1999
     Route: 065
     Dates: start: 19980101
  2. EDHANOL [Concomitant]
     Dosage: OTHER INDICATIONS: TREMOR AND ABSENCE; THERAPY START DATE BEFORE 1999
     Dates: start: 19980101

REACTIONS (4)
  - AMNESIA [None]
  - DRUG INEFFECTIVE [None]
  - SEDATION [None]
  - TONGUE BITING [None]
